FAERS Safety Report 9613173 (Version 1)
Quarter: 2013Q4

REPORT INFORMATION
  Report Type: Spontaneous
  Country: US (occurrence: US)
  Receive Date: 20131010
  Receipt Date: 20131010
  Transmission Date: 20140711
  Serious: Yes (Hospitalization, Other)
  Sender: FDA-Public Use
  Company Number: US-B.I. PHARMACEUTICALS,INC./RIDGEFIELD-2013-BI-31646BP

PATIENT
  Age: 63 Year
  Sex: Female
  Weight: 127 kg

DRUGS (6)
  1. SPIRIVA [Suspect]
     Indication: CHRONIC OBSTRUCTIVE PULMONARY DISEASE
     Dosage: 18 MCG
     Route: 055
     Dates: start: 2009
  2. INSULIN 70/30 [Concomitant]
     Indication: DIABETES MELLITUS
     Dosage: 180 U
     Route: 058
  3. GLUCOPHAGE [Concomitant]
     Indication: DIABETES MELLITUS
     Dosage: 1000 MG
     Route: 048
  4. LISINOPRIL [Concomitant]
     Indication: HYPERTENSION
     Dosage: 40 MG
     Route: 048
  5. FUROSEMIDE [Concomitant]
     Indication: HYPERTENSION
     Dosage: 60 MG
     Route: 048
  6. ASPIRIN [Concomitant]
     Dosage: 81 MG
     Route: 048

REACTIONS (3)
  - Neuroendocrine carcinoma of the skin [Not Recovered/Not Resolved]
  - Biopsy lymph gland abnormal [Not Recovered/Not Resolved]
  - Neuroendocrine carcinoma of the skin [Recovered/Resolved]
